FAERS Safety Report 7282760-8 (Version None)
Quarter: 2011Q1

REPORT INFORMATION
  Report Type: 
  Country: None (occurrence: None)
  Receive Date: 20110209
  Receipt Date: 20110128
  Transmission Date: 20110831
  Serious: Yes (Other)
  Sender: FDA-Public Use
  Company Number: US-JNJFOC-20101109045

PATIENT
  Sex: Female
  Weight: 117.03 kg

DRUGS (28)
  1. REMICADE [Suspect]
     Indication: RHEUMATOID ARTHRITIS
     Route: 042
  2. REMICADE [Suspect]
     Route: 042
  3. BENADRYL [Concomitant]
     Indication: PREMEDICATION
     Route: 048
  4. LIPITOR [Concomitant]
  5. CORAL CALCIUM [Concomitant]
  6. NAPROSYN [Concomitant]
  7. ZYRTEC [Concomitant]
  8. REMICADE [Suspect]
     Route: 042
  9. PREDNISONE [Concomitant]
  10. METHOTREXATE [Concomitant]
  11. ACTONEL [Concomitant]
  12. ARAVA [Concomitant]
  13. ASPIRIN [Concomitant]
     Route: 048
  14. PAXIL [Concomitant]
     Route: 048
  15. TYLENOL-500 [Concomitant]
     Indication: PREMEDICATION
     Route: 048
  16. FOSAMAX [Concomitant]
  17. MULTI-VITAMINS [Concomitant]
  18. HYDROCORTISONE [Concomitant]
  19. FISH OIL [Concomitant]
     Route: 048
  20. REMICADE [Suspect]
     Route: 042
  21. REMICADE [Suspect]
     Route: 042
  22. LEVOTHYROXINE SODIUM [Concomitant]
     Route: 048
  23. DEPO-MEDROL [Concomitant]
     Route: 030
  24. TYLENOL (CAPLET) [Concomitant]
     Route: 048
  25. PREDNISONE [Concomitant]
     Route: 048
  26. REMICADE [Suspect]
     Route: 042
  27. APAP TAB [Concomitant]
  28. ZOFRAN [Concomitant]
     Indication: PREMEDICATION
     Route: 042

REACTIONS (18)
  - ABASIA [None]
  - DIZZINESS [None]
  - NAUSEA [None]
  - HYPERHIDROSIS [None]
  - BLOOD PRESSURE DECREASED [None]
  - ARTHRALGIA [None]
  - DRUG INEFFECTIVE [None]
  - HYPERTENSION [None]
  - TREMOR [None]
  - INFUSION RELATED REACTION [None]
  - PALLOR [None]
  - FEELING COLD [None]
  - ASTHENIA [None]
  - VOMITING [None]
  - MYALGIA [None]
  - MUSCULOSKELETAL STIFFNESS [None]
  - LOSS OF CONSCIOUSNESS [None]
  - FATIGUE [None]
